FAERS Safety Report 17270846 (Version 1)
Quarter: 2020Q1

REPORT INFORMATION
  Report Type: Spontaneous
  Country: DE (occurrence: DE)
  Receive Date: 20200115
  Receipt Date: 20200115
  Transmission Date: 20200409
  Serious: Yes (Congenital Anomaly)
  Sender: FDA-Public Use
  Company Number: DE-ADVANZ PHARMA-202001000236

PATIENT

DRUGS (1)
  1. HYDROXYCHLOROQUINE [Suspect]
     Active Substance: HYDROXYCHLOROQUINE
     Indication: MATERNAL EXPOSURE TIMING UNSPECIFIED
     Dosage: UNK (FILM-COATED TABLET)
     Route: 064

REACTIONS (2)
  - Trisomy 18 [Unknown]
  - Maternal exposure timing unspecified [Unknown]
